FAERS Safety Report 4694833-4 (Version None)
Quarter: 2005Q2

REPORT INFORMATION
  Report Type: 
  Country: None (occurrence: None)
  Receive Date: 20050620
  Receipt Date: 20050401
  Transmission Date: 20051028
  Serious: Yes (Hospitalization)
  Sender: FDA-Public Use
  Company Number: 2005GB01132

PATIENT
  Age: 24756 Day
  Sex: Male

DRUGS (1)
  1. ROSUVASTATIN [Suspect]
     Indication: RENAL FAILURE CHRONIC
     Route: 048
     Dates: start: 20031121

REACTIONS (2)
  - GRAFT INFECTION [None]
  - INTERNATIONAL NORMALISED RATIO INCREASED [None]
